FAERS Safety Report 8957799 (Version 1)
Quarter: 2012Q4

REPORT INFORMATION
  Report Type: 
  Country: US (occurrence: US)
  Receive Date: 20121211
  Receipt Date: 20121211
  Transmission Date: 20130627
  Serious: Yes (Disabling)
  Sender: FDA-Public Use
  Company Number: US-CELGENEUS-163-21880-12114154

PATIENT
  Sex: Male
  Weight: 108.96 kg

DRUGS (11)
  1. REVLIMID [Suspect]
     Indication: MULTIPLE MYELOMA
     Dosage: 25 Milligram
     Route: 048
     Dates: start: 200910
  2. REVLIMID [Suspect]
     Dosage: 10 Milligram
     Route: 048
     Dates: start: 201104
  3. REVLIMID [Suspect]
     Dosage: 5 Milligram
     Route: 048
     Dates: start: 201105
  4. TRAMADOL [Concomitant]
     Indication: PAIN
     Dosage: 300 Milligram
     Route: 048
  5. GABAPENTIN [Concomitant]
     Indication: PAIN
     Dosage: 1800 Milligram
     Route: 048
  6. ASPIRIN [Concomitant]
     Indication: DRUG THERAPY
     Dosage: 81 Milligram
     Route: 048
  7. CALCIUM WITH VITAMIN D [Concomitant]
     Indication: BONE DISORDER (NOS)
     Route: 048
  8. REMERON [Concomitant]
     Indication: DRUG THERAPY
     Dosage: 45 Milligram
     Route: 048
  9. CELEXA [Concomitant]
     Indication: DRUG THERAPY
     Dosage: 40 Milligram
     Route: 048
  10. HYTRIN [Concomitant]
     Indication: PROSTATIC HYPERPLASIA
     Dosage: 4 Milligram
     Route: 048
  11. POTASSIUM [Concomitant]
     Indication: POTASSIUM SUPPLEMENTATION
     Route: 048

REACTIONS (3)
  - Intervertebral disc degeneration [Not Recovered/Not Resolved]
  - Oedema [Recovered/Resolved]
  - Hypoaesthesia [Not Recovered/Not Resolved]
